FAERS Safety Report 10681640 (Version 1)
Quarter: 2014Q4

REPORT INFORMATION
  Report Type: Spontaneous
  Country: IT (occurrence: IT)
  Receive Date: 20141230
  Receipt Date: 20141230
  Transmission Date: 20150529
  Serious: Yes (Other)
  Sender: FDA-Public Use
  Company Number: IT-TEVA-531117ISR

PATIENT
  Age: 67 Year
  Sex: Male

DRUGS (3)
  1. FLUTIOR 200 MG [Suspect]
     Active Substance: FLUCONAZOLE
     Indication: ANTIFUNGAL PROPHYLAXIS
     Dosage: 200 MILLIGRAM DAILY;
     Route: 048
     Dates: start: 20141106, end: 20141110
  2. COLIMICINA (COLISTIMETHATE SODIUM) [Suspect]
     Active Substance: COLISTIMETHATE SODIUM
     Indication: NOCARDIOSIS
     Dosage: 3000000 IU (INTERNATIONAL UNIT) DAILY;
     Route: 030
     Dates: start: 20141106, end: 20141110
  3. AMIKACINA TEVA [Suspect]
     Active Substance: AMIKACIN
     Indication: NOCARDIOSIS
     Dosage: 1 GRAM DAILY;
     Route: 042
     Dates: start: 20141106, end: 20141110

REACTIONS (1)
  - Acute generalised exanthematous pustulosis [Recovered/Resolved]

NARRATIVE: CASE EVENT DATE: 20141108
